FAERS Safety Report 6148750-3 (Version None)
Quarter: 2009Q2

REPORT INFORMATION
  Report Type: 
  Country: None (occurrence: None)
  Receive Date: 20090408
  Receipt Date: 20090330
  Transmission Date: 20091009
  Serious: Yes (Other)
  Sender: FDA-Public Use
  Company Number: US-ELI_LILLY_AND_COMPANY-US200903007709

PATIENT
  Sex: Male

DRUGS (3)
  1. GEMCITABINE HCL [Suspect]
     Indication: HODGKIN'S DISEASE
     Dosage: 1000 MG/M2, OTHER
     Route: 042
  2. VINORELBINE [Concomitant]
     Indication: HODGKIN'S DISEASE
     Dosage: 25 MG/M2, OTHER
     Route: 040
  3. NEUPOGEN [Concomitant]
     Indication: HODGKIN'S DISEASE
     Dosage: 5 D/F, UNK

REACTIONS (2)
  - MYELODYSPLASTIC SYNDROME [None]
  - PLATELET COUNT ABNORMAL [None]
